FAERS Safety Report 9316905 (Version 2)
Quarter: 2013Q4

REPORT INFORMATION
  Report Type: Spontaneous
  Country: US (occurrence: None)
  Receive Date: 20130523
  Receipt Date: 20131015
  Transmission Date: 20140711
  Serious: Yes (Disabling, Other)
  Sender: FDA-Public Use
  Company Number: 1305-633

PATIENT
  Age: 78 Year
  Sex: Male

DRUGS (5)
  1. EYLEA [Suspect]
     Indication: AGE-RELATED MACULAR DEGENERATION
     Dosage: INTRAVITREAL
     Dates: start: 20130311, end: 20130509
  2. CARVEDILOL (CARVEDILOL) [Concomitant]
  3. CLOBETASOL (CLOBETASOL) [Concomitant]
  4. PANTOPRAZOLE (PANTOPRAZOLE) [Concomitant]
  5. SIMVASTATIN (SIMVASTATIN) [Concomitant]

REACTIONS (3)
  - Endophthalmitis [None]
  - Streptococcus test positive [None]
  - Intraocular pressure decreased [None]
